FAERS Safety Report 16043827 (Version 7)
Quarter: 2019Q3

REPORT INFORMATION
  Report Type: Report from Study
  Country: US (occurrence: US)
  Receive Date: 20190306
  Receipt Date: 20190808
  Transmission Date: 20191004
  Serious: Yes (Hospitalization)
  Sender: FDA-Public Use
  Company Number: US-PFIZER INC-2019082975

PATIENT
  Age: 64 Year
  Sex: Female

DRUGS (5)
  1. IBRANCE [Suspect]
     Active Substance: PALBOCICLIB
     Dosage: 100 MG, CYCLIC (21 DAYS ON/7 DAYS OFF)
     Route: 048
     Dates: start: 20190304, end: 20190324
  2. IBRANCE [Suspect]
     Active Substance: PALBOCICLIB
     Dosage: 75 MG, CYCLIC (21 DAYS ON/7 DAYS OFF)
     Route: 048
     Dates: start: 20190417, end: 20190507
  3. IBRANCE [Suspect]
     Active Substance: PALBOCICLIB
     Indication: BREAST CANCER FEMALE
     Dosage: 125 MG CYCLIC (21 DAYS ON/7 DAYS OFF/DAILY)
     Route: 048
     Dates: start: 20190130, end: 2019
  4. IBRANCE [Suspect]
     Active Substance: PALBOCICLIB
     Dosage: 75 MG, CYCLIC (14 DAYS ON/14 DAYS OFF)
     Route: 048
     Dates: start: 20190702
  5. IBRANCE [Suspect]
     Active Substance: PALBOCICLIB
     Dosage: 75 MG, CYCLIC (21 DAYS ON/7 DAYS OFF)
     Route: 048
     Dates: end: 20190612

REACTIONS (13)
  - White blood cell count decreased [Recovering/Resolving]
  - Tongue disorder [Unknown]
  - Paronychia [Not Recovered/Not Resolved]
  - Bone marrow disorder [Recovering/Resolving]
  - Stomatitis [Recovered/Resolved]
  - Dehydration [Unknown]
  - Red blood cell count decreased [Unknown]
  - Constipation [Recovering/Resolving]
  - Vomiting [Recovered/Resolved]
  - Musculoskeletal pain [Recovered/Resolved]
  - Fatigue [Not Recovered/Not Resolved]
  - Nausea [Recovered/Resolved]
  - Alopecia [Recovering/Resolving]

NARRATIVE: CASE EVENT DATE: 2019
